FAERS Safety Report 6589311-1 (Version None)
Quarter: 2010Q1

REPORT INFORMATION
  Report Type: 
  Country: None (occurrence: None)
  Receive Date: 20100218
  Receipt Date: 20100202
  Transmission Date: 20100710
  Serious: Yes (Hospitalization)
  Sender: FDA-Public Use
  Company Number: US-SANOFI-AVENTIS-2010SA006743

PATIENT
  Age: 77 Year
  Sex: Male

DRUGS (3)
  1. UROXATRAL [Suspect]
     Indication: PROSTATIC DISORDER
     Route: 048
     Dates: start: 20090101, end: 20100130
  2. PLAVIX [Suspect]
     Indication: TRANSIENT ISCHAEMIC ATTACK
     Route: 048
     Dates: start: 20090101, end: 20100130
  3. METOPROLOL TARTRATE [Concomitant]

REACTIONS (9)
  - CEREBRAL HAEMORRHAGE [None]
  - CONTUSION [None]
  - DYSPHAGIA [None]
  - FALL [None]
  - FOREIGN BODY [None]
  - LOSS OF CONSCIOUSNESS [None]
  - OFF LABEL USE [None]
  - PRODUCT QUALITY ISSUE [None]
  - WOUND HAEMORRHAGE [None]
